FAERS Safety Report 23576361 (Version 2)
Quarter: 2024Q2

REPORT INFORMATION
  Report Type: Spontaneous
  Country: ES (occurrence: ES)
  Receive Date: 20240228
  Receipt Date: 20240426
  Transmission Date: 20240716
  Serious: Yes (Other)
  Sender: FDA-Public Use
  Company Number: ES-JNJFOC-20240270835

PATIENT
  Age: 74 Year
  Sex: Female

DRUGS (2)
  1. IMBRUVICA [Suspect]
     Active Substance: IBRUTINIB
     Indication: Chronic lymphocytic leukaemia
     Route: 048
     Dates: start: 201701
  2. IMBRUVICA [Suspect]
     Active Substance: IBRUTINIB
     Indication: Chronic lymphocytic leukaemia
     Route: 048

REACTIONS (14)
  - Atrial fibrillation [Unknown]
  - Infection [Unknown]
  - Hypertension [Unknown]
  - Haemorrhage [Unknown]
  - Musculoskeletal pain [Unknown]
  - Bradycardia [Unknown]
  - Haemorrhoidal haemorrhage [Unknown]
  - Gastroenteritis [Unknown]
  - Urinary tract infection [Unknown]
  - Arthralgia [Unknown]
  - Epistaxis [Unknown]
  - Renal mass [Unknown]
  - Upper gastrointestinal haemorrhage [Unknown]
  - Haematoma [Unknown]
